FAERS Safety Report 21198554 (Version 4)
Quarter: 2025Q2

REPORT INFORMATION
  Report Type: Spontaneous
  Country: ES (occurrence: ES)
  Receive Date: 20220811
  Receipt Date: 20250429
  Transmission Date: 20250717
  Serious: Yes (Death, Life-Threatening, Hospitalization, Other)
  Sender: AUROBINDO
  Company Number: ES-AUROBINDO-AUR-APL-2022-030155

PATIENT
  Age: 62 Year
  Sex: Male

DRUGS (5)
  1. FLUCONAZOLE [Suspect]
     Active Substance: FLUCONAZOLE
     Indication: Fungal infection
     Route: 065
  2. MYCOPHENOLIC ACID [Suspect]
     Active Substance: MYCOPHENOLIC ACID
     Indication: Immunosuppressant drug therapy
     Route: 065
  3. AMPHOTERICIN B [Suspect]
     Active Substance: AMPHOTERICIN B
     Indication: Fungal infection
     Route: 065
  4. CYCLOSPORINE [Suspect]
     Active Substance: CYCLOSPORINE
     Indication: Immunosuppressant drug therapy
     Route: 065
  5. TACROLIMUS [Suspect]
     Active Substance: TACROLIMUS
     Indication: Immunosuppressant drug therapy
     Route: 065

REACTIONS (14)
  - Encephalitis [Fatal]
  - Ischaemic stroke [Fatal]
  - Cerebral infarction [Fatal]
  - Central nervous system vasculitis [Fatal]
  - Intracranial pressure increased [Fatal]
  - Lacunar infarction [Fatal]
  - Meningitis cryptococcal [Fatal]
  - Cerebrovascular accident [Fatal]
  - Drug ineffective [Fatal]
  - Cryptococcosis [Unknown]
  - Facial paralysis [Unknown]
  - Hemiparesis [Unknown]
  - Neurotoxicity [Unknown]
  - Hyponatraemia [Unknown]
